FAERS Safety Report 17648866 (Version 1)
Quarter: 2020Q2

REPORT INFORMATION
  Report Type: Spontaneous
  Country: JP (occurrence: JP)
  Receive Date: 20200409
  Receipt Date: 20200409
  Transmission Date: 20200713
  Serious: Yes (Hospitalization)
  Sender: FDA-Public Use
  Company Number: JP-BAUSCH-BL-2020-008607

PATIENT
  Age: 68 Year
  Sex: Male

DRUGS (2)
  1. LUMICEF [Suspect]
     Active Substance: BRODALUMAB
     Indication: PSORIASIS
     Dosage: SYRINGE, EVERY 1-4 WEEK (IRREGULAR); THERAPY DURATION: 2 YEARS 6 DAYS
     Route: 058
     Dates: start: 20171213, end: 20191218
  2. LUMICEF [Suspect]
     Active Substance: BRODALUMAB
     Dosage: SYRINGE, EVERY 1-4 WEEK (IRREGULAR)
     Route: 058
     Dates: start: 20200311

REACTIONS (2)
  - Lung neoplasm malignant [Recovering/Resolving]
  - Psoriasis [Recovered/Resolved]

NARRATIVE: CASE EVENT DATE: 20200115
